FAERS Safety Report 5814190-7 (Version None)
Quarter: 2008Q3

REPORT INFORMATION
  Report Type: 
  Country: None (occurrence: None)
  Receive Date: 20080715
  Receipt Date: 20080708
  Transmission Date: 20090109
  Serious: Yes (Other)
  Sender: FDA-Public Use
  Company Number: CHPA2008US11254

PATIENT
  Age: 80 Year
  Sex: Male
  Weight: 77.1 kg

DRUGS (3)
  1. MAALOX ANTIACID/ANTIGAS MAX STR MULTI SYMPTOM (NCH)(MAGNESIUM HYDROXID [Suspect]
     Indication: ABDOMINAL PAIN UPPER
     Dosage: 6 TSP, QHS, ORAL
     Route: 048
     Dates: start: 20080601, end: 20080601
  2. PANTOPRAZOLE SODIUM [Concomitant]
  3. SIMVASTATIN [Concomitant]

REACTIONS (7)
  - ABDOMINAL PAIN UPPER [None]
  - ASTHENIA [None]
  - DECREASED APPETITE [None]
  - DIARRHOEA [None]
  - FLATULENCE [None]
  - MILK ALLERGY [None]
  - WEIGHT DECREASED [None]
